FAERS Safety Report 8502494-9 (Version None)
Quarter: 2012Q3

REPORT INFORMATION
  Report Type: 
  Country: None (occurrence: None)
  Receive Date: 20120711
  Receipt Date: 20120705
  Transmission Date: 20120928
  Serious: Yes (Hospitalization)
  Sender: FDA-Public Use
  Company Number: US-BAYER-2012-038155

PATIENT
  Age: 22 Year
  Sex: Female
  Weight: 91 kg

DRUGS (12)
  1. YASMIN [Suspect]
     Indication: MENSTRUAL DISORDER
  2. VALIUM [Concomitant]
     Dosage: 5 MG, UNK
     Route: 048
     Dates: start: 20090505
  3. NUVARING [Concomitant]
  4. PROZAC [Concomitant]
     Dosage: 20 MG, ONE DAILY
     Route: 048
     Dates: start: 20090505
  5. YASMIN [Suspect]
     Indication: CONTRACEPTION
     Dosage: UNK
     Dates: start: 20040301
  6. YASMIN [Suspect]
     Indication: PREMENSTRUAL SYNDROME
  7. YAZ [Suspect]
     Indication: MENSTRUAL DISORDER
  8. YAZ [Suspect]
     Indication: CONTRACEPTION
     Dosage: UNK
     Dates: start: 20090101, end: 20090501
  9. TOPIRAMATE [Concomitant]
     Indication: MIGRAINE
     Dosage: UNK
     Dates: start: 20090501, end: 20091201
  10. XENICAL [Concomitant]
     Indication: HYPERLIPIDAEMIA
     Dosage: 120 MG, TID
     Route: 048
     Dates: start: 20090505
  11. YAZ [Suspect]
     Indication: PREMENSTRUAL SYNDROME
  12. IRON [Concomitant]
     Dosage: 325 MG, DAILY
     Route: 048
     Dates: start: 20090505

REACTIONS (3)
  - TRANSVERSE SINUS THROMBOSIS [None]
  - INJURY [None]
  - PAIN [None]
